FAERS Safety Report 18936362 (Version 2)
Quarter: 2021Q1

REPORT INFORMATION
  Report Type: Spontaneous
  Country: CA (occurrence: CA)
  Receive Date: 20210224
  Receipt Date: 20210226
  Transmission Date: 20210420
  Serious: Yes (Other)
  Sender: FDA-Public Use
  Company Number: CA-JNJFOC-20210234094

PATIENT
  Sex: Female
  Weight: 55 kg

DRUGS (11)
  1. DEXILANT [Concomitant]
     Active Substance: DEXLANSOPRAZOLE
     Indication: SYSTEMIC SCLERODERMA
     Route: 048
     Dates: start: 2019
  2. CYCLOPHOSPHAMIDE. [Concomitant]
     Active Substance: CYCLOPHOSPHAMIDE
     Indication: MONONEUROPATHY MULTIPLEX
     Route: 042
     Dates: start: 20201109
  3. TRACLEER [Suspect]
     Active Substance: BOSENTAN
     Indication: PULMONARY ARTERIAL HYPERTENSION
     Route: 048
     Dates: start: 200802, end: 202101
  4. COLCHICINE. [Concomitant]
     Active Substance: COLCHICINE
     Indication: PERICARDIAL EFFUSION
     Route: 048
     Dates: start: 20200908, end: 202012
  5. SEPTRA DS [Concomitant]
     Active Substance: SULFAMETHOXAZOLE\TRIMETHOPRIM
     Indication: PROPHYLAXIS
     Route: 048
     Dates: start: 20201109
  6. ATORVASTATIN [Concomitant]
     Active Substance: ATORVASTATIN
     Indication: PROPHYLAXIS
     Route: 048
     Dates: start: 2017
  7. ACTONEL [Concomitant]
     Active Substance: RISEDRONATE SODIUM
     Indication: PROPHYLAXIS
     Route: 048
     Dates: start: 202012
  8. LYRICA [Concomitant]
     Active Substance: PREGABALIN
     Indication: MONONEUROPATHY MULTIPLEX
     Route: 048
     Dates: start: 202009
  9. FERAMAX [Concomitant]
     Active Substance: IRON\POLYSACCHARIDES
     Indication: IRON DEFICIENCY
     Route: 048
     Dates: start: 2019
  10. DECADRON [Concomitant]
     Active Substance: DEXAMETHASONE
     Indication: MONONEUROPATHY MULTIPLEX
     Route: 042
     Dates: start: 20201109
  11. PREDNISONE. [Concomitant]
     Active Substance: PREDNISONE
     Indication: MONONEUROPATHY MULTIPLEX
     Route: 048
     Dates: start: 202009

REACTIONS (2)
  - Pulmonary arterial hypertension [Unknown]
  - Right ventricular dysfunction [Unknown]

NARRATIVE: CASE EVENT DATE: 20200812
